FAERS Safety Report 9697294 (Version 1)
Quarter: 2013Q4

REPORT INFORMATION
  Report Type: Spontaneous
  Country: US (occurrence: None)
  Receive Date: 20131119
  Receipt Date: 20131119
  Transmission Date: 20140711
  Serious: Yes (Other)
  Sender: FDA-Public Use
  Company Number: None

PATIENT
  Sex: 0

DRUGS (1)
  1. OXYBUTYNIN [Suspect]
     Indication: NEUROGENIC BLADDER
     Route: 061

REACTIONS (2)
  - Hot flush [None]
  - Drug ineffective [None]
